FAERS Safety Report 20680048 (Version 1)
Quarter: 2022Q2

REPORT INFORMATION
  Report Type: Spontaneous
  Country: US (occurrence: US)
  Receive Date: 20220406
  Receipt Date: 20220406
  Transmission Date: 20220721
  Serious: Yes (Hospitalization, Other)
  Sender: FDA-Public Use
  Company Number: US-PFIZER INC-202200489001

PATIENT
  Age: 59 Year
  Sex: Female
  Weight: 94.8 kg

DRUGS (1)
  1. METHOTREXATE SODIUM [Suspect]
     Active Substance: METHOTREXATE SODIUM
     Dosage: UNK

REACTIONS (4)
  - Cerebrovascular accident [Unknown]
  - Dizziness [Unknown]
  - Balance disorder [Unknown]
  - Alopecia [Unknown]
